FAERS Safety Report 7986326-3 (Version None)
Quarter: 2011Q4

REPORT INFORMATION
  Report Type: 
  Country: None (occurrence: None)
  Receive Date: 20111216
  Receipt Date: 20110707
  Transmission Date: 20120403
  Serious: No
  Sender: FDA-Public Use
  Company Number: US-BRISTOL-MYERS SQUIBB COMPANY-15882772

PATIENT
  Age: 34 Year
  Sex: Male

DRUGS (1)
  1. ABILIFY [Suspect]
     Indication: DEPRESSION

REACTIONS (8)
  - MUSCLE RIGIDITY [None]
  - FEELING ABNORMAL [None]
  - RETROGRADE EJACULATION [None]
  - MUSCLE SPASMS [None]
  - BLOOD TESTOSTERONE INCREASED [None]
  - MOOD ALTERED [None]
  - ANXIETY [None]
  - SYNCOPE [None]
